FAERS Safety Report 8385885 (Version 2)
Quarter: 2013Q4

REPORT INFORMATION
  Report Type: Report from Study
  Country: MX (occurrence: MX)
  Receive Date: 20120202
  Receipt Date: 20131001
  Transmission Date: 20140711
  Serious: Yes (Death, Hospitalization, Other)
  Sender: FDA-Public Use
  Company Number: PHHY2012MX006317

PATIENT
  Age: 93 Year
  Sex: Female

DRUGS (2)
  1. EXFORGE [Suspect]
     Indication: HYPERTENSION
     Dosage: 1 DF (160 MG VALS, 5 MG AMLO), ONCE A DAY
     Route: 048
     Dates: start: 2010
  2. INSULIN [Concomitant]
     Indication: DIABETES MELLITUS
     Dosage: 16 U, DAILY
     Dates: start: 200201

REACTIONS (7)
  - Sepsis [Fatal]
  - Limb injury [Fatal]
  - Contusion [Fatal]
  - Skin ulcer [Fatal]
  - Acute abdomen [Unknown]
  - Calculus urinary [Unknown]
  - Gait disturbance [Unknown]
